FAERS Safety Report 5259349-5 (Version None)
Quarter: 2007Q1

REPORT INFORMATION
  Report Type: 
  Country: None (occurrence: None)
  Receive Date: 20070302
  Receipt Date: 20070219
  Transmission Date: 20070707
  Serious: Yes (Death)
  Sender: FDA-Public Use
  Company Number: GXKR2007FR01785

PATIENT
  Age: 54 Year
  Sex: Female

DRUGS (3)
  1. OXALIPLATIN (NGX)(OXALIPLATIN) UNKNOWN [Suspect]
     Indication: METASTASES TO LIVER
     Dosage: 125 MG
     Dates: start: 20030401
  2. LEUCOVORIN CALCIUM (NGX) (CALCIUM FOLINATE) UNKNOWN [Suspect]
     Indication: METASTASIS
     Dates: start: 20030401
  3. FLUOROURACIL [Suspect]
     Indication: METASTASIS
     Dates: start: 20030401

REACTIONS (6)
  - ASCITES [None]
  - HEPATIC ATROPHY [None]
  - HEPATIC FIBROSIS [None]
  - HEPATIC NEOPLASM [None]
  - HEPATORENAL SYNDROME [None]
  - VENOOCCLUSIVE LIVER DISEASE [None]
